FAERS Safety Report 19663865 (Version 1)
Quarter: 2021Q3

REPORT INFORMATION
  Report Type: Report from Study
  Country: HK (occurrence: HK)
  Receive Date: 20210805
  Receipt Date: 20210805
  Transmission Date: 20211014
  Serious: Yes (Other)
  Sender: FDA-Public Use
  Company Number: HK-TEVA-2021-HK-1938231

PATIENT
  Age: 20 Year
  Sex: Female

DRUGS (6)
  1. FUROSEMIDE. [Suspect]
     Active Substance: FUROSEMIDE
     Indication: DRUG THERAPY
     Route: 065
  2. CHLORPHENIRAMINE. [Suspect]
     Active Substance: CHLORPHENIRAMINE
     Indication: DRUG THERAPY
     Route: 065
  3. FLUOXETINE [Suspect]
     Active Substance: FLUOXETINE HYDROCHLORIDE
     Indication: DRUG THERAPY
     Route: 065
  4. BISACODYL. [Suspect]
     Active Substance: BISACODYL
     Indication: DRUG THERAPY
     Route: 065
  5. SIBUTRAMINE [Suspect]
     Active Substance: SIBUTRAMINE
     Indication: DRUG THERAPY
     Route: 065
  6. HYDROCHLOROTHIAZIDE. [Suspect]
     Active Substance: HYDROCHLOROTHIAZIDE
     Indication: DRUG THERAPY
     Route: 065

REACTIONS (6)
  - Palpitations [Unknown]
  - Off label use [Unknown]
  - Toxicity to various agents [Unknown]
  - Dizziness [Unknown]
  - Chest pain [Unknown]
  - Intentional product misuse [Unknown]
